FAERS Safety Report 7524951-4 (Version None)
Quarter: 2011Q2

REPORT INFORMATION
  Report Type: 
  Country: None (occurrence: None)
  Receive Date: 20110606
  Receipt Date: 20110524
  Transmission Date: 20111010
  Serious: Yes (Other)
  Sender: FDA-Public Use
  Company Number: CA-ELI_LILLY_AND_COMPANY-CA201105006744

PATIENT
  Sex: Male
  Weight: 97.506 kg

DRUGS (23)
  1. TRAZODONE HCL [Concomitant]
  2. RISPERDAL [Concomitant]
  3. CARBAMAZEPINE [Concomitant]
  4. CYCLOBENZAPRINE [Concomitant]
  5. CLONAZEPAM [Concomitant]
  6. AKINETON [Concomitant]
  7. MODECATE [Concomitant]
  8. ZYPREXA [Suspect]
     Dosage: 5 MG, QD
  9. ZYPREXA ZYDIS [Suspect]
     Indication: BIPOLAR DISORDER
     Dosage: 10 MG, QD
  10. DIVALPROEX SODIUM [Concomitant]
  11. ZOPICLONE [Concomitant]
  12. ATIVAN [Concomitant]
  13. ZYPREXA [Suspect]
     Dosage: 15 MG, QD
  14. ZYPREXA [Suspect]
     Dosage: 20 MG, QD
  15. LITHIUM CARBONATE [Concomitant]
  16. CLOPIXOL [Concomitant]
  17. RABEPRAZOLE SODIUM [Concomitant]
  18. PREVACID [Concomitant]
  19. ZYPREXA [Suspect]
     Indication: BIPOLAR DISORDER
     Dosage: 2.5 MG, QD
  20. ZYPREXA [Suspect]
     Dosage: 7.5 MG, QD
  21. ZYPREXA [Suspect]
     Dosage: 10 MG, QD
  22. RANITIDINE [Concomitant]
  23. NEXIUM [Concomitant]

REACTIONS (17)
  - WEIGHT INCREASED [None]
  - RADICULOPATHY [None]
  - INTESTINAL OBSTRUCTION [None]
  - FUNGAL INFECTION [None]
  - NEUROPATHY PERIPHERAL [None]
  - CHEST PAIN [None]
  - DIABETES MELLITUS [None]
  - VISUAL IMPAIRMENT [None]
  - DIVERTICULUM INTESTINAL [None]
  - HAEMATOCHEZIA [None]
  - IMPAIRED FASTING GLUCOSE [None]
  - HYPERTENSION [None]
  - HEPATIC STEATOSIS [None]
  - DYSLIPIDAEMIA [None]
  - MICROCYTOSIS [None]
  - BILE DUCT STONE [None]
  - IRRITABLE BOWEL SYNDROME [None]
